FAERS Safety Report 11427324 (Version 1)
Quarter: 2015Q3

REPORT INFORMATION
  Report Type: Spontaneous
  Country: US (occurrence: US)
  Receive Date: 20150827
  Receipt Date: 20150827
  Transmission Date: 20151125
  Serious: No
  Sender: FDA-Public Use
  Company Number: US-SA-2014SA162922

PATIENT
  Age: 47 Year
  Sex: Male
  Weight: 72.71 kg

DRUGS (19)
  1. ACETAMINOPHEN. [Concomitant]
     Active Substance: ACETAMINOPHEN
  2. ASPIRIN. [Concomitant]
     Active Substance: ASPIRIN
     Dosage: STRENGTH: 325 MG TABLET
  3. PROTONIX [Concomitant]
     Active Substance: PANTOPRAZOLE SODIUM
     Dosage: STRENGTH: 400 MG TAB
  4. DIFLUCAN [Concomitant]
     Active Substance: FLUCONAZOLE
     Dosage: STRENGTH :100 MG TAB
  5. VANCOMYCIN [Concomitant]
     Active Substance: VANCOMYCIN
     Dosage: STRENGTH: 1 G VIAL
  6. DIPHENHYDRAMINE. [Concomitant]
     Active Substance: DIPHENHYDRAMINE
  7. LIDOCAINE/PRILOCAINE [Concomitant]
  8. NORCO [Concomitant]
     Active Substance: ACETAMINOPHEN\HYDROCODONE BITARTRATE
     Dosage: STRENGTH: 325 MH TABLET
  9. SACCHAROMYCES BOULARDII [Concomitant]
     Active Substance: SACCHAROMYCES CEREVISIAE
     Dosage: STRENGTH: 250 MG CAPSULE
  10. FABRAZYME [Suspect]
     Active Substance: AGALSIDASE BETA
     Indication: LIPIDOSIS
     Route: 042
     Dates: start: 20130812
  11. HYDROCORTISONE. [Concomitant]
     Active Substance: HYDROCORTISONE
  12. PARACETAMOL/OXYCODONE HYDROCHLORIDE [Concomitant]
  13. LOPRESSOR [Concomitant]
     Active Substance: METOPROLOL TARTRATE
     Dosage: STRENGTH: 50 MG TAB (STRENGTH)
  14. FABRAZYME [Suspect]
     Active Substance: AGALSIDASE BETA
     Indication: LIPIDOSIS
     Route: 042
     Dates: start: 20130812
  15. NORMAL SALINE [Concomitant]
     Active Substance: SODIUM CHLORIDE
  16. MEROPENEM. [Concomitant]
     Active Substance: MEROPENEM
     Dosage: STRENGTH: 1 GM VIAL
  17. PROMETHAZINE [Concomitant]
     Active Substance: PROMETHAZINE\PROMETHAZINE HYDROCHLORIDE
     Dosage: STRENGTH: 25 MG TABLET
  18. SODIUM CHLORIDE. [Concomitant]
     Active Substance: SODIUM CHLORIDE
  19. EPIPEN [Concomitant]
     Active Substance: EPINEPHRINE

REACTIONS (2)
  - Pain [Unknown]
  - Lethargy [Unknown]
